FAERS Safety Report 23458860 (Version 1)
Quarter: 2024Q1

REPORT INFORMATION
  Report Type: Spontaneous
  Country: FR (occurrence: FR)
  Receive Date: 20240131
  Receipt Date: 20240131
  Transmission Date: 20240409
  Serious: Yes (Hospitalization, Other)
  Sender: FDA-Public Use
  Company Number: FR-AFSSAPS-MP2024000100

PATIENT
  Age: 64 Year
  Sex: Female
  Weight: 50 kg

DRUGS (3)
  1. DIAZEPAM [Suspect]
     Active Substance: DIAZEPAM
     Indication: Toxicity to various agents
     Dosage: UNK
     Route: 048
     Dates: start: 20230204, end: 20230204
  2. CYAMEMAZINE [Suspect]
     Active Substance: CYAMEMAZINE
     Indication: Toxicity to various agents
     Dosage: UNK
     Route: 048
     Dates: start: 20230204, end: 20230204
  3. MIRTAZAPINE [Suspect]
     Active Substance: MIRTAZAPINE
     Indication: Toxicity to various agents
     Dosage: UNK
     Route: 048
     Dates: start: 20230204, end: 20230204

REACTIONS (2)
  - Intentional overdose [Recovered/Resolved]
  - Coma [Recovered/Resolved]

NARRATIVE: CASE EVENT DATE: 20230204
